FAERS Safety Report 10895139 (Version 1)
Quarter: 2015Q1

REPORT INFORMATION
  Report Type: Spontaneous
  Country: US (occurrence: US)
  Receive Date: 20150306
  Receipt Date: 20150306
  Transmission Date: 20150721
  Serious: No
  Sender: FDA-Public Use
  Company Number: US-AMGEN-USASP2014022109

PATIENT
  Age: 78 Year
  Sex: Male

DRUGS (2)
  1. RENAGEL [Concomitant]
     Active Substance: SEVELAMER HYDROCHLORIDE
     Indication: BLOOD PRESSURE
  2. SENSIPAR [Suspect]
     Active Substance: CINACALCET HYDROCHLORIDE
     Indication: PRODUCT USED FOR UNKNOWN INDICATION
     Dosage: 60 MG, QD
     Route: 065

REACTIONS (6)
  - Pupillary reflex impaired [Unknown]
  - Diplopia [Unknown]
  - Breast tenderness [Unknown]
  - Blood phosphorus decreased [Unknown]
  - Hypoaesthesia [Unknown]
  - Breast pain [Unknown]
